FAERS Safety Report 7232602-1 (Version None)
Quarter: 2011Q1

REPORT INFORMATION
  Report Type: 
  Country: None (occurrence: None)
  Receive Date: 20110119
  Receipt Date: 20110106
  Transmission Date: 20110831
  Serious: Yes (Other)
  Sender: FDA-Public Use
  Company Number: PHFR2010GB05932

PATIENT
  Sex: Male
  Weight: 106 kg

DRUGS (4)
  1. CLOZARIL [Suspect]
     Indication: SCHIZOPHRENIA
     Dosage: 25 MG AM AND 50 MG PM
     Route: 048
     Dates: start: 20101210
  2. FLUPENTIXOL [Concomitant]
     Dosage: DEOPT 300 MG INJECTION , 2 WEEKLY
     Route: 030
     Dates: end: 20101126
  3. FLUPENTIXOL [Concomitant]
     Indication: SCHIZOPHRENIA
     Dosage: 6 MG
     Route: 048
     Dates: end: 20101211
  4. CLOZARIL [Suspect]
     Dosage: 25 MG, BID
     Route: 048
     Dates: end: 20101221

REACTIONS (6)
  - SINUS TACHYCARDIA [None]
  - ELECTROCARDIOGRAM QT PROLONGED [None]
  - HEART RATE INCREASED [None]
  - DYSPNOEA EXERTIONAL [None]
  - HYPERHIDROSIS [None]
  - PALPITATIONS [None]
